FAERS Safety Report 12248199 (Version 2)
Quarter: 2016Q2

REPORT INFORMATION
  Report Type: Report from Study
  Country: IN (occurrence: IN)
  Receive Date: 20160408
  Receipt Date: 20160419
  Transmission Date: 20160815
  Serious: Yes (Death, Other)
  Sender: FDA-Public Use
  Company Number: IN-BRISTOL-MYERS SQUIBB COMPANY-BMS-2016-026601

PATIENT
  Age: 52 Year
  Sex: Male

DRUGS (1)
  1. ENTECAVIR. [Suspect]
     Active Substance: ENTECAVIR
     Indication: HEPATITIS B
     Dosage: 0.5 MG, QD
     Route: 048
     Dates: start: 20160201, end: 20160402

REACTIONS (2)
  - Hepatic failure [Fatal]
  - Anaemia [Unknown]

NARRATIVE: CASE EVENT DATE: 20160403
